FAERS Safety Report 6093766-9 (Version None)
Quarter: 2009Q1

REPORT INFORMATION
  Report Type: 
  Country: None (occurrence: None)
  Receive Date: 20090223
  Receipt Date: 20090223
  Transmission Date: 20090719
  Serious: Yes (Hospitalization)
  Sender: FDA-Public Use
  Company Number: None

PATIENT
  Age: 64 Year
  Sex: Male
  Weight: 61.2356 kg

DRUGS (6)
  1. FENTANYL TRANSDERMAL SYSTEM [Suspect]
     Indication: DIABETIC NEUROPATHY
     Dosage: 1 PATCH 75 MCG/ HR EVERY 72 HOURS TRANSDERMAL
     Route: 062
     Dates: start: 20090207, end: 20090209
  2. METFORMIN HCL [Concomitant]
  3. GABAPENTIN [Concomitant]
  4. PENTOXIFYLLINE [Concomitant]
  5. METROPROLOL TARTRATE [Concomitant]
  6. AMLODIPINE BESYLATE [Concomitant]

REACTIONS (4)
  - DYSPNOEA [None]
  - HALLUCINATION [None]
  - PANIC ATTACK [None]
  - SKIN ODOUR ABNORMAL [None]
